FAERS Safety Report 8566187 (Version 3)
Quarter: 2012Q4

REPORT INFORMATION
  Report Type: 
  Country: US (occurrence: US)
  Receive Date: 20120517
  Receipt Date: 20121009
  Transmission Date: 20130627
  Serious: Yes (Other)
  Sender: FDA-Public Use
  Company Number: US-PFIZER INC-2012117211

PATIENT
  Age: 61 Year
  Sex: Male
  Weight: 104 kg

DRUGS (24)
  1. LYRICA [Suspect]
     Indication: NEUROPATHY PERIPHERAL
     Dosage: 100 mg, 3x/day
     Route: 048
     Dates: start: 2004, end: 20120501
  2. METOPROLOL [Concomitant]
     Dosage: 100 mg, 2x/day
  3. GLYBURIDE [Concomitant]
     Dosage: 5 mg, daily
  4. ENALAPRIL [Concomitant]
     Dosage: 20 mg, 2x/day
  5. NOVOLIN R [Concomitant]
     Dosage: 5/10 mg, 2x/day
  6. NOVOLIN R [Concomitant]
     Dosage: 30 IU, 3x/day
  7. HYDRALAZINE [Concomitant]
     Dosage: 50 mg, 1x/day
  8. HYDRALAZINE [Concomitant]
     Dosage: 25 mg, 2x/day
  9. INSULIN DETEMIR [Concomitant]
     Dosage: 55 IU, 1x/day
  10. OMEGA-3 [Concomitant]
     Dosage: 1000 mg, 2x/day
  11. ACETYLSALICYLIC ACID [Concomitant]
     Dosage: 325 mg, daily
  12. JANUVIA [Concomitant]
     Dosage: 50 mg, daily
  13. HUMULIN N [Concomitant]
     Dosage: UNK
  14. VITAMIN B [Concomitant]
     Dosage: UNK
  15. LIPITOR [Concomitant]
     Indication: BLOOD CHOLESTEROL ABNORMAL
     Dosage: 40 mg, 1x/day
  16. LIPITOR [Concomitant]
     Dosage: 20 mg, daily
  17. SPIRONOLACTONE [Concomitant]
     Dosage: 25 mg, daily
  18. POTASSIUM [Concomitant]
     Dosage: 20 mg, as needed
  19. FUROSEMIDE [Concomitant]
     Dosage: 80 mg, 3x/day
  20. METHIMAZOLE [Concomitant]
     Dosage: 10 mg, 2x/day
  21. ISOSORBIDE [Concomitant]
     Dosage: 30 mg, 2x/day
  22. VITAMIN D [Concomitant]
     Dosage: 400 IU, daily
  23. PLAVIX [Concomitant]
     Dosage: 75 mg, daily
  24. LANTUS [Concomitant]
     Dosage: 45 IU,daily

REACTIONS (7)
  - Hypoaesthesia [Not Recovered/Not Resolved]
  - Muscle spasms [Not Recovered/Not Resolved]
  - Feeling abnormal [Not Recovered/Not Resolved]
  - Restless legs syndrome [Not Recovered/Not Resolved]
  - Paraesthesia [Not Recovered/Not Resolved]
  - Insomnia [Unknown]
  - Pain in extremity [Not Recovered/Not Resolved]
